FAERS Safety Report 23692641 (Version 3)
Quarter: 2024Q4

REPORT INFORMATION
  Report Type: Report from Study
  Country: CL (occurrence: CL)
  Receive Date: 20240401
  Receipt Date: 20241029
  Transmission Date: 20250114
  Serious: Yes (Hospitalization, Other)
  Sender: NOVARTIS
  Company Number: CL-002147023-NVSC2024CL018372

PATIENT
  Age: 64 Year
  Sex: Male

DRUGS (3)
  1. COSENTYX [Suspect]
     Active Substance: SECUKINUMAB
     Indication: Psoriatic arthropathy
     Dosage: 300 MG, QMO
     Route: 058
     Dates: start: 20231018, end: 20231225
  2. COSENTYX [Suspect]
     Active Substance: SECUKINUMAB
     Dosage: 300 MG, QMO
     Route: 058
     Dates: end: 20231115
  3. ESOMEPRAZOLE [Concomitant]
     Active Substance: ESOMEPRAZOLE
     Indication: Gastrointestinal disorder
     Dosage: UNK
     Route: 065

REACTIONS (16)
  - Aphthous ulcer [Unknown]
  - Dysphagia [Unknown]
  - Oropharyngeal pain [Unknown]
  - Oropharyngeal discomfort [Unknown]
  - Oral pain [Unknown]
  - Malaise [Unknown]
  - Oral mucosal blistering [Recovered/Resolved]
  - Glossodynia [Unknown]
  - Selective eating disorder [Unknown]
  - Pharyngitis [Unknown]
  - Tongue abscess [Recovered/Resolved]
  - Gastritis bacterial [Unknown]
  - Oral disorder [Unknown]
  - Discomfort [Recovering/Resolving]
  - Hand dermatitis [Unknown]
  - Psoriasis [Unknown]

NARRATIVE: CASE EVENT DATE: 20231101
